FAERS Safety Report 10009368 (Version 1)
Quarter: 2014Q1

REPORT INFORMATION
  Report Type: Spontaneous
  Country: SE (occurrence: SE)
  Receive Date: 20140313
  Receipt Date: 20140313
  Transmission Date: 20141002
  Serious: Yes (Other)
  Sender: FDA-Public Use
  Company Number: SE-TEVA-466246ISR

PATIENT
  Sex: 0

DRUGS (1)
  1. DOXYFERM [Suspect]
     Indication: RESPIRATORY TRACT INFECTION

REACTIONS (3)
  - Pulmonary embolism [Unknown]
  - Hypersensitivity [Unknown]
  - General physical health deterioration [Unknown]
